FAERS Safety Report 7731062-1 (Version None)
Quarter: 2011Q3

REPORT INFORMATION
  Report Type: 
  Country: None (occurrence: None)
  Receive Date: 20110906
  Receipt Date: 20110906
  Transmission Date: 20111222
  Serious: Yes (Other)
  Sender: FDA-Public Use
  Company Number: None

PATIENT
  Age: 54 Year
  Sex: Female
  Weight: 41.276 kg

DRUGS (1)
  1. BONIVA [Suspect]
     Indication: OSTEOPENIA
     Dosage: 150MG
     Route: 048
     Dates: start: 20101020, end: 20110821

REACTIONS (27)
  - LYMPHADENOPATHY [None]
  - EYE PAIN [None]
  - HYPOAESTHESIA [None]
  - PAIN [None]
  - DRY THROAT [None]
  - SWOLLEN TONGUE [None]
  - WEIGHT DECREASED [None]
  - DYSPNOEA [None]
  - MUSCULAR WEAKNESS [None]
  - TREMOR [None]
  - MYALGIA [None]
  - HEART RATE INCREASED [None]
  - PARAESTHESIA [None]
  - HEADACHE [None]
  - CHILLS [None]
  - MOVEMENT DISORDER [None]
  - TINNITUS [None]
  - DIZZINESS [None]
  - FATIGUE [None]
  - MUSCULOSKELETAL STIFFNESS [None]
  - CHEST DISCOMFORT [None]
  - DYSPHAGIA [None]
  - LIP SWELLING [None]
  - VERTIGO [None]
  - URINARY TRACT DISORDER [None]
  - OEDEMA MOUTH [None]
  - ASTHENIA [None]
